FAERS Safety Report 4505690-0 (Version None)
Quarter: 2004Q4

REPORT INFORMATION
  Report Type: 
  Country: None (occurrence: None)
  Receive Date: 20041025
  Receipt Date: 20031223
  Transmission Date: 20050328
  Serious: Yes (Other)
  Sender: FDA-Public Use
  Company Number: US-JNJFOC-20031005636

PATIENT
  Age: 64 Year
  Sex: Female
  Weight: 65.7716 kg

DRUGS (5)
  1. REMICADE [Suspect]
     Indication: RHEUMATOID ARTHRITIS
     Dosage: INTRAVENOUS
     Route: 042
     Dates: start: 20030707
  2. METHOTREXATE [Concomitant]
  3. ZOCOR [Concomitant]
  4. FOSAMAX [Concomitant]
  5. DIAZIDE (GLICLAZIDE) [Concomitant]

REACTIONS (5)
  - DYSPNOEA [None]
  - OEDEMA MOUTH [None]
  - RASH [None]
  - SWOLLEN TONGUE [None]
  - VOMITING [None]
